FAERS Safety Report 9579492 (Version 2)
Quarter: 2013Q4

REPORT INFORMATION
  Report Type: Spontaneous
  Country: US (occurrence: US)
  Receive Date: 20131001
  Receipt Date: 20131001
  Transmission Date: 20140711
  Serious: No
  Sender: FDA-Public Use
  Company Number: US-AMGEN-USASP2013005376

PATIENT
  Age: 47 Year
  Sex: Female
  Weight: 87.2 kg

DRUGS (3)
  1. ENBREL [Suspect]
     Indication: RHEUMATOID ARTHRITIS
     Dosage: 50 MG, QWK
     Route: 058
     Dates: start: 20121226
  2. PLAQUENIL                          /00072602/ [Concomitant]
     Dosage: 200 MG, BID TAKING FOR 1 YEAR NOW
     Dates: start: 20120122
  3. METHOTREXATE [Concomitant]
     Dosage: UNK

REACTIONS (3)
  - Headache [Not Recovered/Not Resolved]
  - Nausea [Not Recovered/Not Resolved]
  - Injection site pain [Recovered/Resolved]
